FAERS Safety Report 5761874-5 (Version None)
Quarter: 2008Q2

REPORT INFORMATION
  Report Type: 
  Country: None (occurrence: None)
  Receive Date: 20080606
  Receipt Date: 20080526
  Transmission Date: 20081010
  Serious: Yes (Other)
  Sender: FDA-Public Use
  Company Number: US-PFIZER INC-2008045972

PATIENT
  Sex: Male
  Weight: 72.6 kg

DRUGS (7)
  1. CHANTIX [Suspect]
     Indication: SMOKING CESSATION THERAPY
     Route: 048
  2. TRIAMTERENE [Concomitant]
     Dosage: TEXT:37.5MG/2.5 MG
  3. LISINOPRIL [Concomitant]
  4. ATENOLOL [Concomitant]
  5. TAMSULOSIN HCL [Concomitant]
     Indication: URINARY TRACT DISORDER
  6. ALPRAZOLAM [Concomitant]
  7. HYDROCODONE [Concomitant]
     Indication: NEUROPATHY PERIPHERAL

REACTIONS (1)
  - BLOOD GLUCOSE INCREASED [None]
